FAERS Safety Report 4483414-3 (Version None)
Quarter: 2004Q4

REPORT INFORMATION
  Report Type: 
  Country: None (occurrence: None)
  Receive Date: 20041020
  Receipt Date: 20040930
  Transmission Date: 20050328
  Serious: Yes (Other)
  Sender: FDA-Public Use
  Company Number: USA040875535

PATIENT
  Age: 84 Year
  Sex: Female
  Weight: 47 kg

DRUGS (12)
  1. FORTEO [Suspect]
     Indication: SPINAL FRACTURE
     Dosage: 20 UG/ 1 DAY
     Dates: start: 20040601
  2. ASPIRIN [Concomitant]
  3. CARTEOLOL HCL [Concomitant]
  4. FOLIC ACID [Concomitant]
  5. LEVOTHYROXINE SODIUM [Concomitant]
  6. METHOTREXATE [Concomitant]
  7. NITRO-DUR [Concomitant]
  8. OSCAL (CALCIUM CARBONATE) [Concomitant]
  9. PLAVIX [Concomitant]
  10. TEMAZEPAM [Concomitant]
  11. TOPROL-XL [Concomitant]
  12. ZOCOR [Concomitant]

REACTIONS (14)
  - FALL [None]
  - HAEMORRHAGE [None]
  - IMPAIRED HEALING [None]
  - INCISION SITE HAEMORRHAGE [None]
  - INJECTION SITE DISCOLOURATION [None]
  - INJECTION SITE HAEMORRHAGE [None]
  - INJECTION SITE RASH [None]
  - LACERATION [None]
  - LIMB INJURY [None]
  - MEDICATION ERROR [None]
  - PHARMACEUTICAL PRODUCT COMPLAINT [None]
  - SKIN CANCER [None]
  - VOMITING [None]
  - WEIGHT DECREASED [None]
